FAERS Safety Report 18219937 (Version 2)
Quarter: 2020Q3

REPORT INFORMATION
  Report Type: Report from Study
  Country: None (occurrence: US)
  Receive Date: 20200901
  Receipt Date: 20200909
  Transmission Date: 20201103
  Serious: Yes (Hospitalization)
  Sender: FDA-Public Use
  Company Number: US-ABBVIE-20K-163-3543073-00

PATIENT
  Sex: Male

DRUGS (1)
  1. VENCLEXTA [Suspect]
     Active Substance: VENETOCLAX
     Indication: ACUTE MYELOID LEUKAEMIA
     Route: 048
     Dates: start: 20200807

REACTIONS (15)
  - Vomiting [Unknown]
  - Rhinorrhoea [Unknown]
  - Asthenia [Unknown]
  - Cellulitis [Unknown]
  - Epistaxis [Unknown]
  - Fatigue [Unknown]
  - Cough [Unknown]
  - Decreased activity [Unknown]
  - Nausea [Unknown]
  - Decreased appetite [Unknown]
  - Dyspnoea exertional [Unknown]
  - Stomatitis [Unknown]
  - Hypotension [Unknown]
  - Gait inability [Unknown]
  - Back pain [Unknown]

NARRATIVE: CASE EVENT DATE: 2020
